FAERS Safety Report 9651094 (Version 1)
Quarter: 2013Q4

REPORT INFORMATION
  Report Type: Spontaneous
  Country: US (occurrence: US)
  Receive Date: 20131029
  Receipt Date: 20131029
  Transmission Date: 20140711
  Serious: No
  Sender: FDA-Public Use
  Company Number: US-PFIZER INC-2013306107

PATIENT
  Age: 72 Year
  Sex: Male

DRUGS (18)
  1. LYRICA [Suspect]
     Dosage: 225 MG, 2X/DAY
     Route: 048
  2. XANAX [Suspect]
     Dosage: 0.5 MG, 2X/DAY (PRN)
     Route: 048
  3. ACETYLSALICYLIC ACID [Concomitant]
     Dosage: 81 MG, 1X/DAY
     Route: 048
  4. ESCITALOPRAM OXALATE [Concomitant]
     Dosage: 10 MG, 1X/DAY
     Route: 048
  5. FISH OIL [Concomitant]
     Dosage: 1000 MG, 2X/DAY
     Route: 048
  6. FISH OIL [Concomitant]
     Dosage: 1200 MG, 2X/DAY
     Route: 048
  7. GLIPIZIDE [Concomitant]
     Dosage: 5 MG, 2X/DAY
     Route: 048
  8. IMDUR [Concomitant]
     Dosage: 30 MG, 1X/DAY
     Route: 048
  9. JANUVIA [Concomitant]
     Dosage: 50 MG, 1X/DAY
     Route: 048
  10. LASIX [Concomitant]
     Dosage: 40 MG, 1X/DAY
     Route: 048
  11. LEVOTHYROXINE SODIUM [Concomitant]
     Dosage: 25 UG, 1X/DAY
     Route: 048
  12. METOPROLOL [Concomitant]
     Dosage: 1000 MG, 2X/DAY
     Route: 048
  13. METFORMIN HYDROCHLORIDE [Concomitant]
     Dosage: 1000 MG, 2X/DAY
     Route: 048
  14. NITROGLYCERIN [Concomitant]
     Indication: CHEST PAIN
     Dosage: 0.4 MG, AS NEEDED
  15. OMEPRAZOLE [Concomitant]
     Dosage: 40 MG, 2X/DAY
     Route: 048
  16. PACERONE [Concomitant]
     Dosage: 200 MG, 1X/DAY
     Route: 048
  17. TRAMADOL [Concomitant]
     Indication: PAIN
     Dosage: 50 MG, AS NEEDED (4-6 HOURS PRN)
     Route: 048
  18. VITAMIN B12 [Concomitant]
     Dosage: 1000 UG, 1X/DAY
     Route: 048

REACTIONS (1)
  - Chest pain [Unknown]
